FAERS Safety Report 13892930 (Version 1)
Quarter: 2017Q3

REPORT INFORMATION
  Report Type: Spontaneous
  Country: US (occurrence: US)
  Receive Date: 20170822
  Receipt Date: 20170822
  Transmission Date: 20171127
  Serious: No
  Sender: FDA-Public Use
  Company Number: US-ROCHE-1093092

PATIENT
  Age: 57 Year
  Sex: Female

DRUGS (2)
  1. LAPATINIB [Concomitant]
     Active Substance: LAPATINIB
     Indication: BREAST CANCER METASTATIC
  2. HERCEPTIN [Suspect]
     Active Substance: TRASTUZUMAB
     Indication: BREAST CANCER METASTATIC
     Route: 065

REACTIONS (2)
  - Metastasis [Unknown]
  - Carbohydrate antigen 125 increased [Unknown]
